FAERS Safety Report 9494307 (Version 1)
Quarter: 2013Q3

REPORT INFORMATION
  Report Type: Spontaneous
  Country: US (occurrence: None)
  Receive Date: 20130828
  Receipt Date: 20130828
  Transmission Date: 20140515
  Serious: Yes (Other)
  Sender: FDA-Public Use
  Company Number: 2013P1018700

PATIENT
  Age: 48 Year
  Sex: Female

DRUGS (2)
  1. INFUMORPH [Suspect]
     Indication: SURGERY
     Route: 037
  2. INFUMORPH [Suspect]
     Indication: PAIN
     Route: 037

REACTIONS (3)
  - Device breakage [None]
  - Underdose [None]
  - Medical device complication [None]
